FAERS Safety Report 8610442-6 (Version None)
Quarter: 2012Q3

REPORT INFORMATION
  Report Type: 
  Country: None (occurrence: None)
  Receive Date: 20120801
  Receipt Date: 20120718
  Transmission Date: 20120928
  Serious: Yes (Hospitalization)
  Sender: FDA-Public Use
  Company Number: 2012PROUSA01682

PATIENT
  Age: 72 Year
  Sex: Male
  Weight: 72.1 kg

DRUGS (16)
  1. LORAZEPAM [Concomitant]
  2. BUPROPION HYDROCHLORIDE [Concomitant]
  3. CLONIDINE [Concomitant]
  4. ASPIRIN [Concomitant]
  5. PROVENGE [Suspect]
     Indication: PROSTATE CANCER METASTATIC
     Dosage: 250 ML, SINGLE, INTRAVENOUS, 250 ML, SINGLE, INTRAVENOUS, 250 ML, SINGLE, INTRAVENOUS
     Route: 042
     Dates: start: 20120330, end: 20120330
  6. PROVENGE [Suspect]
     Indication: PROSTATE CANCER METASTATIC
     Dosage: 250 ML, SINGLE, INTRAVENOUS, 250 ML, SINGLE, INTRAVENOUS, 250 ML, SINGLE, INTRAVENOUS
     Route: 042
     Dates: start: 20120427, end: 20120427
  7. PROVENGE [Suspect]
     Indication: PROSTATE CANCER METASTATIC
     Dosage: 250 ML, SINGLE, INTRAVENOUS, 250 ML, SINGLE, INTRAVENOUS, 250 ML, SINGLE, INTRAVENOUS
     Route: 042
     Dates: start: 20120413, end: 20120413
  8. PROVENGE [Suspect]
  9. PROVENGE [Suspect]
  10. ATENOLOL [Concomitant]
  11. LAMICTAL [Concomitant]
  12. NIFEDIPINE [Concomitant]
  13. VITAMIN E FORMULA (TOCOPHEROL) [Concomitant]
  14. CITALOPRAM HYDROBROMIDE [Concomitant]
  15. OMEPRAZOLE [Concomitant]
  16. ATIVAN [Concomitant]

REACTIONS (5)
  - LOSS OF CONSCIOUSNESS [None]
  - THORACIC VERTEBRAL FRACTURE [None]
  - ARTERIOVENOUS MALFORMATION [None]
  - SUBARACHNOID HAEMORRHAGE [None]
  - FALL [None]
